FAERS Safety Report 12909723 (Version 1)
Quarter: 2016Q4

REPORT INFORMATION
  Report Type: Spontaneous
  Country: FR (occurrence: FR)
  Receive Date: 20161104
  Receipt Date: 20161104
  Transmission Date: 20170207
  Serious: Yes (Death, Hospitalization)
  Sender: FDA-Public Use
  Company Number: FR-ACCORD-045227

PATIENT
  Age: 59 Year
  Sex: Female

DRUGS (4)
  1. AMLOR [Concomitant]
     Active Substance: AMLODIPINE BESYLATE
  2. DOCETAXEL ACCORD [Suspect]
     Active Substance: DOCETAXEL
     Indication: BREAST CANCER
     Route: 042
     Dates: start: 20160108, end: 20160108
  3. CIBACENE [Concomitant]
     Active Substance: BENAZEPRIL HYDROCHLORIDE
  4. BENAZEPRIL/BENAZEPRIL HYDROCHLORIDE [Concomitant]

REACTIONS (6)
  - Lactic acidosis [Unknown]
  - Parametritis [Fatal]
  - Febrile bone marrow aplasia [Unknown]
  - Septic shock [Fatal]
  - Febrile neutropenia [Fatal]
  - Multiple organ dysfunction syndrome [Unknown]

NARRATIVE: CASE EVENT DATE: 20160615
